FAERS Safety Report 5156480-X (Version None)
Quarter: 2006Q4

REPORT INFORMATION
  Report Type: 
  Country: None (occurrence: None)
  Receive Date: 20061114
  Receipt Date: 20061102
  Transmission Date: 20070319
  Serious: Yes (Death)
  Sender: FDA-Public Use
  Company Number: 2006134971

PATIENT
  Age: 64 Year
  Sex: Female

DRUGS (1)
  1. VERAPAMIL HYDROCHLORIDE [Suspect]
     Dosage: 360-540 MG (180 MG), ORAL
     Route: 048

REACTIONS (2)
  - INCORRECT DOSE ADMINISTERED [None]
  - INTENTIONAL DRUG MISUSE [None]
